FAERS Safety Report 21478616 (Version 1)
Quarter: 2022Q4

REPORT INFORMATION
  Report Type: Report from Study
  Country: US (occurrence: US)
  Receive Date: 20221019
  Receipt Date: 20221019
  Transmission Date: 20230113
  Serious: Yes (Hospitalization)
  Sender: FDA-Public Use
  Company Number: US-ABBVIE-22P-163-4536754-00

PATIENT
  Age: 82 Year
  Sex: Female

DRUGS (3)
  1. IBRUTINIB [Suspect]
     Active Substance: IBRUTINIB
     Indication: Chronic lymphocytic leukaemia
     Route: 048
     Dates: start: 20220523
  2. VENETOCLAX [Suspect]
     Active Substance: VENETOCLAX
     Indication: Chronic lymphocytic leukaemia
     Dosage: 20MG D1-7 CYCLE 3, 50MG D8-14 CYCLE 3, 100MG D15-21 CYCLE 3, 200MG D22-28 CYCLE 3, 400MG D1-28, C...
     Route: 048
     Dates: start: 20220718
  3. OBINUTUZUMAB [Concomitant]
     Active Substance: OBINUTUZUMAB
     Indication: Chronic lymphocytic leukaemia
     Dosage: 100 MG ON C1D1, 900 MG ON C1D2, 1000 MG ON C1D8 + C1D15, C2-6D1
     Route: 042
     Dates: start: 20220523

REACTIONS (3)
  - Back pain [Not Recovered/Not Resolved]
  - Non-cardiac chest pain [Recovered/Resolved]
  - Enterocolitis infectious [Recovered/Resolved]

NARRATIVE: CASE EVENT DATE: 20220727
